FAERS Safety Report 21678745 (Version 1)
Quarter: 2022Q4

REPORT INFORMATION
  Report Type: Spontaneous
  Country: CA (occurrence: CA)
  Receive Date: 20221204
  Receipt Date: 20221204
  Transmission Date: 20230113
  Serious: Yes (Hospitalization)
  Sender: FDA-Public Use
  Company Number: CA-JNJFOC-20221167253

PATIENT
  Age: 24 Year
  Sex: Male

DRUGS (6)
  1. REMICADE [Suspect]
     Active Substance: INFLIXIMAB
     Indication: Ankylosing spondylitis
     Route: 041
  2. CYCLOBENZAPRINE [Concomitant]
     Active Substance: CYCLOBENZAPRINE
  3. DICLOFENAC [Concomitant]
     Active Substance: DICLOFENAC
  4. FOLIC ACID [Concomitant]
     Active Substance: FOLIC ACID
  5. MISOPROSTOL [Concomitant]
     Active Substance: MISOPROSTOL
  6. NAPROXEN [Concomitant]
     Active Substance: NAPROXEN

REACTIONS (4)
  - Henoch-Schonlein purpura [Unknown]
  - Weight decreased [Unknown]
  - COVID-19 [Unknown]
  - Off label use [Unknown]
